FAERS Safety Report 6234907-X (Version None)
Quarter: 2009Q2

REPORT INFORMATION
  Report Type: 
  Country: None (occurrence: None)
  Receive Date: 20090618
  Receipt Date: 20090608
  Transmission Date: 20091009
  Serious: Yes (Hospitalization, Congenital Anomaly)
  Sender: FDA-Public Use
  Company Number: A0756636A

PATIENT
  Sex: Female
  Weight: 3.2 kg

DRUGS (4)
  1. PAXIL [Suspect]
     Indication: DEPRESSION
     Dates: start: 19980501, end: 20010601
  2. EXCEDRIN [Concomitant]
  3. VITAMIN TAB [Concomitant]
  4. IRON SUPPLEMENTS [Concomitant]

REACTIONS (17)
  - ASPIRATION [None]
  - ATRIAL SEPTAL DEFECT [None]
  - ATRIOVENTRICULAR BLOCK FIRST DEGREE [None]
  - CARDIAC DISORDER [None]
  - CARDIAC MURMUR [None]
  - CONDUCTION DISORDER [None]
  - CONGENITAL ANOMALY [None]
  - DRUG EXPOSURE DURING PREGNANCY [None]
  - HEADACHE [None]
  - MATERNAL DRUGS AFFECTING FOETUS [None]
  - MITRAL VALVE INCOMPETENCE [None]
  - NAUSEA [None]
  - PULMONARY OEDEMA [None]
  - TRICUSPID VALVE INCOMPETENCE [None]
  - VENTRICULAR HYPERTROPHY [None]
  - VENTRICULAR SEPTAL DEFECT [None]
  - VOMITING [None]
